FAERS Safety Report 8854228 (Version 1)
Quarter: 2012Q4

REPORT INFORMATION
  Report Type: 
  Country: US (occurrence: US)
  Receive Date: 20121022
  Receipt Date: 20121022
  Transmission Date: 20130627
  Serious: Yes (Hospitalization)
  Sender: FDA-Public Use
  Company Number: US-BAYER-2012-106973

PATIENT
  Age: 28 Year
  Sex: Female

DRUGS (5)
  1. OCELLA [Suspect]
  2. MORPHINE [Concomitant]
     Indication: PAIN
  3. LISINOPRIL [Concomitant]
     Indication: HYPERTENSION
  4. PULMICORT [Concomitant]
     Dosage: 90 ?g, UNK
     Dates: start: 20100920
  5. LISINOPRIL HCT [Concomitant]
     Dosage: 10-12.5 , UNK
     Route: 048
     Dates: start: 20100918

REACTIONS (2)
  - Deep vein thrombosis [None]
  - Thrombophlebitis superficial [None]
